FAERS Safety Report 5406090-1 (Version None)
Quarter: 2007Q3

REPORT INFORMATION
  Report Type: 
  Country: None (occurrence: None)
  Receive Date: 20070806
  Receipt Date: 20070717
  Transmission Date: 20080115
  Serious: Yes (Hospitalization)
  Sender: FDA-Public Use
  Company Number: FR-AMGEN-UK193353

PATIENT
  Sex: Female

DRUGS (2)
  1. DARBEPOETIN ALFA [Suspect]
     Indication: DIALYSIS
     Route: 058
     Dates: start: 20060907
  2. PREVISCAN [Suspect]
     Route: 048

REACTIONS (1)
  - ISCHAEMIC STROKE [None]
